FAERS Safety Report 23774417 (Version 1)
Quarter: 2024Q2

REPORT INFORMATION
  Report Type: Spontaneous
  Country: US (occurrence: US)
  Receive Date: 20240423
  Receipt Date: 20240423
  Transmission Date: 20240716
  Serious: No
  Sender: FDA-Public Use
  Company Number: US-OPELLA-2024OHG013437

PATIENT
  Sex: Female

DRUGS (1)
  1. ALLEGRA [Suspect]
     Active Substance: FEXOFENADINE HYDROCHLORIDE
     Indication: Nasopharyngitis

REACTIONS (3)
  - Therapeutic product effect incomplete [Unknown]
  - Product use in unapproved indication [Unknown]
  - Sinusitis [Unknown]
